FAERS Safety Report 4474612-3 (Version None)
Quarter: 2004Q4

REPORT INFORMATION
  Report Type: 
  Country: None (occurrence: None)
  Receive Date: 20041012
  Receipt Date: 20040930
  Transmission Date: 20050328
  Serious: Yes (Hospitalization)
  Sender: FDA-Public Use
  Company Number: 6010846

PATIENT
  Age: 83 Year
  Sex: Female

DRUGS (11)
  1. CONCOR 5 (TABLETS) (BISOPROLOL) [Suspect]
     Indication: HYPERTENSION
     Dosage: (5 MG, 1-2 TIMES DAILY ONE TABLET)
     Route: 048
     Dates: start: 19940101
  2. AQUAPHOR (TABLETS) (XIPAMIDE) [Suspect]
     Indication: HYPERTENSION
     Dosage: 20 MG (20 MG, 1 IN 1 D)
     Route: 048
     Dates: start: 20040301
  3. AQUAPHOR (TABLETS) (XIPAMIDE) [Suspect]
     Indication: OEDEMA
     Dosage: 20 MG (20 MG, 1 IN 1 D)
     Route: 048
     Dates: start: 20040301
  4. DIGITOXIN 0,07 (TABLETS) (DIGITOXIN) [Suspect]
     Indication: TACHYARRHYTHMIA
     Dosage: 0,07 MG (0,07 MG, 1 IN 1 D)
     Route: 048
     Dates: start: 20000101, end: 20040514
  5. ALDACTONE (DRAGEES) (SPIRONOLACTONE) [Concomitant]
  6. BERODUAL (FENOTEROL HYDROBROMIDE, IPRATROPIUM BROMIDE) [Concomitant]
  7. CYNT (MOXONIDINE) [Concomitant]
  8. DYNORM (CILAZAPRIL) [Concomitant]
  9. LEVOTHYROXINE SODIUM [Concomitant]
  10. TORASEMID (TORASEMIDE) [Concomitant]
  11. ZOPICLON (ZOPICLONE) [Concomitant]

REACTIONS (3)
  - BRADYARRHYTHMIA [None]
  - CARDIOACTIVE DRUG LEVEL ABOVE THERAPEUTIC [None]
  - DRUG INTERACTION [None]
